FAERS Safety Report 8579077-8 (Version None)
Quarter: 2012Q3

REPORT INFORMATION
  Report Type: 
  Country: None (occurrence: None)
  Receive Date: 20120801
  Receipt Date: 20120801
  Transmission Date: 20120928
  Serious: Yes (Hospitalization)
  Sender: FDA-Public Use
  Company Number: None

PATIENT
  Age: 20 Year
  Sex: Female
  Weight: 75 kg

DRUGS (6)
  1. MESTINON [Concomitant]
  2. AZATHIPOPRINE [Concomitant]
  3. PYRIODOSTIGMINE BROMIDE [Concomitant]
  4. PREDNISONE TAB [Concomitant]
  5. AZASAN [Concomitant]
  6. GAMMAGARD [Suspect]
     Indication: MYASTHENIC SYNDROME
     Dosage: 30 G DAILY X 2 IV
     Route: 042
     Dates: start: 20120720, end: 20120722

REACTIONS (3)
  - MENINGITIS ASEPTIC [None]
  - HEADACHE [None]
  - PYREXIA [None]
